FAERS Safety Report 7715687-5 (Version None)
Quarter: 2011Q3

REPORT INFORMATION
  Report Type: 
  Country: None (occurrence: None)
  Receive Date: 20110829
  Receipt Date: 20110819
  Transmission Date: 20111222
  Serious: Yes (Hospitalization)
  Sender: FDA-Public Use
  Company Number: JP-ROCHE-799092

PATIENT
  Sex: Female

DRUGS (15)
  1. METHOTREXATE [Concomitant]
     Route: 048
     Dates: end: 20080323
  2. PREDNISOLONE [Concomitant]
     Route: 048
     Dates: end: 20080903
  3. TOCILIZUMAB [Suspect]
     Route: 041
     Dates: start: 20090713, end: 20090713
  4. PROPYLTHIOURACIL [Concomitant]
     Route: 048
     Dates: end: 20081217
  5. TOCILIZUMAB [Suspect]
     Route: 041
     Dates: start: 20090105, end: 20090330
  6. METHOTREXATE [Concomitant]
     Route: 048
     Dates: start: 20080324, end: 20080427
  7. PREDNISOLONE [Concomitant]
     Route: 048
     Dates: start: 20080904, end: 20081202
  8. METHOTREXATE [Concomitant]
     Route: 048
     Dates: start: 20080428, end: 20080904
  9. METHOTREXATE [Concomitant]
     Route: 048
     Dates: start: 20080905, end: 20081006
  10. TOCILIZUMAB [Suspect]
     Route: 041
     Dates: start: 20091005, end: 20100324
  11. PROPYLTHIOURACIL [Concomitant]
     Route: 048
     Dates: start: 20081218
  12. LANSOPRAZOLE [Concomitant]
     Route: 048
     Dates: start: 20081217
  13. TOCILIZUMAB [Suspect]
     Indication: RHEUMATOID ARTHRITIS
     Route: 041
     Dates: start: 20080630, end: 20081202
  14. TOCILIZUMAB [Suspect]
     Route: 041
     Dates: start: 20090525, end: 20090525
  15. TOCILIZUMAB [Suspect]
     Route: 041
     Dates: start: 20100628, end: 20100825

REACTIONS (1)
  - POLYARTERITIS NODOSA [None]
